FAERS Safety Report 5244392-2 (Version None)
Quarter: 2007Q1

REPORT INFORMATION
  Report Type: 
  Country: None (occurrence: None)
  Receive Date: 20070222
  Receipt Date: 20070213
  Transmission Date: 20070707
  Serious: No
  Sender: FDA-Public Use
  Company Number: CA-PFIZER INC-2007010891

PATIENT
  Sex: Male
  Weight: 97.5 kg

DRUGS (7)
  1. FRAGMIN [Suspect]
     Indication: DEEP VEIN THROMBOSIS
     Route: 058
  2. INSULIN [Concomitant]
     Route: 058
  3. ACTOS [Concomitant]
     Route: 048
  4. METFORMIN HCL [Concomitant]
     Route: 048
  5. GLYBURIDE [Concomitant]
     Route: 048
  6. ATACAND [Concomitant]
     Route: 048
  7. ALTACE [Concomitant]
     Route: 048

REACTIONS (1)
  - NO ADVERSE EFFECT [None]
